FAERS Safety Report 24372563 (Version 1)
Quarter: 2024Q3

REPORT INFORMATION
  Report Type: Spontaneous
  Country: GB (occurrence: GB)
  Receive Date: 20240927
  Receipt Date: 20240927
  Transmission Date: 20241017
  Serious: Yes (Disabling, Other)
  Sender: BAUSCH AND LOMB
  Company Number: None

PATIENT
  Age: 46 Year
  Sex: Female
  Weight: 52 kg

DRUGS (3)
  1. PLENVU [Suspect]
     Active Substance: ASCORBIC ACID\POLYETHYLENE GLYCOL 3350\POTASSIUM CHLORIDE\SODIUM ASCORBATE\SODIUM CHLORIDE\SODIUM SU
     Indication: Bowel preparation
     Dosage: DOSE 1
     Route: 048
     Dates: start: 20240919, end: 20240919
  2. PLENVU [Suspect]
     Active Substance: ASCORBIC ACID\POLYETHYLENE GLYCOL 3350\POTASSIUM CHLORIDE\SODIUM ASCORBATE\SODIUM CHLORIDE\SODIUM SU
     Dosage: DOSE 2
     Route: 048
     Dates: start: 20240920, end: 20240920
  3. AMITRIPTYLINE [Concomitant]
     Active Substance: AMITRIPTYLINE
     Indication: Product used for unknown indication

REACTIONS (8)
  - Throat irritation [Recovering/Resolving]
  - Hyperhidrosis [Not Recovered/Not Resolved]
  - Oral discomfort [Recovering/Resolving]
  - Malaise [Not Recovered/Not Resolved]
  - Vomiting [Recovered/Resolved]
  - Nausea [Recovered/Resolved]
  - Abdominal pain [Recovered/Resolved]
  - Chills [Recovered/Resolved]

NARRATIVE: CASE EVENT DATE: 20240919
